FAERS Safety Report 15409336 (Version 2)
Quarter: 2018Q4

REPORT INFORMATION
  Report Type: Spontaneous
  Country: FR (occurrence: FR)
  Receive Date: 20180920
  Receipt Date: 20181106
  Transmission Date: 20190204
  Serious: Yes (Other)
  Sender: FDA-Public Use
  Company Number: PHHY2018FR103424

PATIENT
  Sex: Female
  Weight: 55 kg

DRUGS (4)
  1. TACROLIMUS. [Suspect]
     Active Substance: TACROLIMUS
     Indication: RENAL TRANSPLANT
     Dosage: 8 MG, QD
     Route: 048
     Dates: start: 20170720
  2. TACROLIMUS. [Suspect]
     Active Substance: TACROLIMUS
     Dosage: 7 MG, QD
     Route: 048
     Dates: start: 20180412
  3. TACROLIMUS. [Suspect]
     Active Substance: TACROLIMUS
     Dosage: 7.5 MG, QD
     Route: 048
     Dates: start: 20180711
  4. CELLCEPT [Concomitant]
     Active Substance: MYCOPHENOLATE MOFETIL\MYCOPHENOLATE MOFETIL HYDROCHLORIDE
     Indication: IMMUNOSUPPRESSION
     Dosage: 1000 OT, QD
     Route: 065
     Dates: start: 20140712

REACTIONS (1)
  - Vascular hyalinosis [Not Recovered/Not Resolved]

NARRATIVE: CASE EVENT DATE: 20180412
